FAERS Safety Report 8811573 (Version 2)
Quarter: 2012Q4

REPORT INFORMATION
  Report Type: 
  Country: US (occurrence: US)
  Receive Date: 20120927
  Receipt Date: 20121010
  Transmission Date: 20130627
  Serious: Yes (Death, Hospitalization)
  Sender: FDA-Public Use
  Company Number: US-ACTELION-A-NJ2012-72045

PATIENT
  Age: 67 Year
  Sex: Female

DRUGS (3)
  1. VENTAVIS [Suspect]
     Indication: PULMONARY ARTERIAL HYPERTENSION
     Dosage: 5 mcg, 6 times a day
     Route: 055
     Dates: start: 20110225
  2. SILDENAFIL [Concomitant]
  3. COUMADIN [Concomitant]

REACTIONS (6)
  - Left ventricular failure [Fatal]
  - Cardiac valve disease [Fatal]
  - Hepatic encephalopathy [Fatal]
  - Lethargy [Fatal]
  - Confusional state [Fatal]
  - Ammonia increased [Fatal]
